FAERS Safety Report 6269519-5 (Version None)
Quarter: 2009Q3

REPORT INFORMATION
  Report Type: 
  Country: None (occurrence: None)
  Receive Date: 20090715
  Receipt Date: 20090406
  Transmission Date: 20100115
  Serious: No
  Sender: FDA-Public Use
  Company Number: US-TYCO HEALTHCARE/MALLINCKRODT-T200900808

PATIENT
  Sex: Male
  Weight: 77 kg

DRUGS (4)
  1. OXYCODONE HCL [Suspect]
     Indication: HEADACHE
     Dosage: 1-2 TABS, Q4HRS, PRN
     Route: 048
     Dates: start: 20090328, end: 20090331
  2. OXYCODONE HCL [Suspect]
     Indication: MUSCULOSKELETAL STIFFNESS
  3. TEGRETOL [Concomitant]
     Indication: CONVULSION
     Dosage: 200 MG, 1-2 X DAY
     Route: 048
     Dates: start: 20070101
  4. ACETAMINOPHEN [Concomitant]
     Indication: HEADACHE
     Dosage: 600 MG, SINGLE
     Dates: start: 20090328, end: 20090328

REACTIONS (4)
  - ASTHENIA [None]
  - BLOOD GLUCOSE DECREASED [None]
  - TREMOR [None]
  - VERTIGO [None]
